FAERS Safety Report 5351286-0 (Version None)
Quarter: 2007Q2

REPORT INFORMATION
  Report Type: 
  Country: None (occurrence: None)
  Receive Date: 20070521
  Receipt Date: 20070403
  Transmission Date: 20071010
  Serious: No
  Sender: FDA-Public Use
  Company Number: WAES 0704USA00499

PATIENT
  Sex: Male

DRUGS (4)
  1. JANUVIA [Suspect]
     Indication: DIABETES MELLITUS
     Dosage: 100 MG/DAILY/PO
     Route: 048
     Dates: start: 20070320, end: 20070323
  2. JANUVIA [Suspect]
     Indication: DIABETES MELLITUS
     Dosage: DAILY/PO
     Route: 048
     Dates: start: 20070323
  3. ACTOS [Concomitant]
  4. GLIPIZIDE [Concomitant]

REACTIONS (3)
  - NAUSEA [None]
  - VOMITING [None]
  - WRONG TECHNIQUE IN DRUG USAGE PROCESS [None]
